FAERS Safety Report 11064455 (Version 1)
Quarter: 2015Q2

REPORT INFORMATION
  Report Type: Spontaneous
  Country: US (occurrence: US)
  Receive Date: 20150424
  Receipt Date: 20150424
  Transmission Date: 20150821
  Serious: No
  Sender: FDA-Public Use
  Company Number: US-ELI_LILLY_AND_COMPANY-US201504002928

PATIENT
  Sex: Female

DRUGS (6)
  1. METFORMIN [Concomitant]
     Active Substance: METFORMIN HYDROCHLORIDE
  2. HUMALOG [Suspect]
     Active Substance: INSULIN LISPRO
     Indication: TYPE 2 DIABETES MELLITUS
     Dosage: 10 U, TID
     Dates: start: 2013
  3. HUMALOG [Suspect]
     Active Substance: INSULIN LISPRO
     Dosage: 10 U, TID
     Dates: start: 2013
  4. HUMALOG [Suspect]
     Active Substance: INSULIN LISPRO
     Dosage: 10 U, TID
     Dates: start: 2013
  5. HUMALOG [Suspect]
     Active Substance: INSULIN LISPRO
     Dosage: 10 U, TID
     Dates: start: 2012
  6. LANTUS [Concomitant]
     Active Substance: INSULIN GLARGINE

REACTIONS (3)
  - Drug dose omission [Unknown]
  - Underdose [Unknown]
  - Medication error [Unknown]
